FAERS Safety Report 4622380-4 (Version None)
Quarter: 2005Q1

REPORT INFORMATION
  Report Type: 
  Country: None (occurrence: None)
  Receive Date: 20050324
  Receipt Date: 20050324
  Transmission Date: 20050727
  Serious: Yes (Hospitalization)
  Sender: FDA-Public Use
  Company Number: None

PATIENT
  Age: 60 Year
  Sex: Male
  Weight: 92.6 kg

DRUGS (1)
  1. ALIMTA [Suspect]
     Indication: THYMOMA
     Dosage: 1075MG IV Q 21 DAYS
     Route: 042
     Dates: start: 20050222, end: 20050315

REACTIONS (7)
  - DYSPHASIA [None]
  - EROSIVE DUODENITIS [None]
  - GASTRITIS [None]
  - GASTRITIS EROSIVE [None]
  - INFECTION [None]
  - OESOPHAGEAL ACHALASIA [None]
  - PNEUMONIA [None]
